FAERS Safety Report 4855574-3 (Version None)
Quarter: 2005Q4

REPORT INFORMATION
  Report Type: 
  Country: None (occurrence: None)
  Receive Date: 20051214
  Receipt Date: 20051202
  Transmission Date: 20060501
  Serious: Yes (Other)
  Sender: FDA-Public Use
  Company Number: 2005130020

PATIENT
  Sex: Male

DRUGS (3)
  1. ZOLOFT [Suspect]
     Indication: ILL-DEFINED DISORDER
     Dosage: 150 MG (1 D)
     Dates: start: 20020517
  2. ALCOHOL (ETHANOL) [Suspect]
     Indication: ILL-DEFINED DISORDER
  3. TOBACCO (NICOTIANA TABACUM) [Concomitant]
     Indication: ILL-DEFINED DISORDER

REACTIONS (7)
  - APGAR SCORE LOW [None]
  - BODY TEMPERATURE INCREASED [None]
  - DRUG EXPOSURE DURING PREGNANCY [None]
  - DRUG EXPOSURE VIA BREAST MILK [None]
  - DYSPNOEA [None]
  - RESPIRATORY DISORDER NEONATAL [None]
  - UNEVALUABLE EVENT [None]
